FAERS Safety Report 9241807 (Version 1)
Quarter: 2013Q2

REPORT INFORMATION
  Report Type: Spontaneous
  Country: GB (occurrence: GB)
  Receive Date: 20130419
  Receipt Date: 20130419
  Transmission Date: 20140414
  Serious: Yes (Other)
  Sender: FDA-Public Use
  Company Number: GB-NOVOPROD-375248

PATIENT
  Age: 59 Year
  Sex: Female
  Weight: 110 kg

DRUGS (10)
  1. VICTOZA [Suspect]
     Indication: TYPE 1 DIABETES MELLITUS
     Dosage: 0.6 MG, QD
     Route: 065
     Dates: start: 20130219
  2. VICTOZA [Suspect]
     Dosage: 1.2 MG, QD
     Route: 065
     Dates: end: 20130323
  3. NOVOMIX 30 [Concomitant]
     Dosage: 20 ML, QD
     Route: 065
  4. GLUCOPHAGE SR [Concomitant]
     Dosage: 1000 MG, BID
     Route: 065
  5. ASPIRIN [Concomitant]
     Dosage: 75 MG, QD
     Route: 065
  6. BISOPROLOL [Concomitant]
     Dosage: 2.5 MG, QD
     Route: 065
  7. CARDIOPLEN XL [Concomitant]
     Dosage: 5 MG, BID
     Route: 065
  8. LISINOPRIL [Concomitant]
     Dosage: 20 MG, BID
     Route: 065
  9. OMEPRAZOLE [Concomitant]
     Dosage: 20 MG, QD
     Route: 065
  10. SIMVASTATIN [Concomitant]
     Dosage: 40 MG, QD
     Route: 065

REACTIONS (7)
  - Abdominal discomfort [Recovering/Resolving]
  - Gastric pH decreased [Recovering/Resolving]
  - Nausea [Recovering/Resolving]
  - Constipation [Recovering/Resolving]
  - Blood glucose increased [Unknown]
  - Gastrooesophageal reflux disease [Recovering/Resolving]
  - Abdominal pain upper [Recovering/Resolving]
